FAERS Safety Report 21002749 (Version 1)
Quarter: 2022Q2

REPORT INFORMATION
  Report Type: Spontaneous
  Country: US (occurrence: US)
  Receive Date: 20220624
  Receipt Date: 20220624
  Transmission Date: 20220720
  Serious: No
  Sender: FDA-Public Use
  Company Number: US-BioHaven Pharmaceuticals-2022BHV001373

PATIENT
  Age: 92 Year
  Sex: Male

DRUGS (2)
  1. NURTEC ODT [Suspect]
     Active Substance: RIMEGEPANT SULFATE
     Indication: Migraine prophylaxis
     Dosage: PATIENT WAS TAKING IT AS NEEDED IN THE BEGINNING, HE WAS ONLY TAKING IT ONCE A WEEK; IN THE FIRST MO
     Route: 048
     Dates: start: 202203, end: 2022
  2. NURTEC ODT [Suspect]
     Active Substance: RIMEGEPANT SULFATE
     Indication: Headache
     Dosage: WHEN THE HEADACHES STARTED TO COME MORE FREQUENTLY, DOCTOR WANTED HIM TO START TAKING IT EVERY OTHER
     Route: 048
     Dates: start: 2022

REACTIONS (2)
  - Drug ineffective [Not Recovered/Not Resolved]
  - Product physical issue [Unknown]

NARRATIVE: CASE EVENT DATE: 20220101
